FAERS Safety Report 21836112 (Version 2)
Quarter: 2023Q1

REPORT INFORMATION
  Report Type: Report from Study
  Country: CA (occurrence: CA)
  Receive Date: 20230109
  Receipt Date: 20230215
  Transmission Date: 20230418
  Serious: Yes (Hospitalization, Other)
  Sender: FDA-Public Use
  Company Number: CA-TAKEDA-2022TUS096752

PATIENT
  Age: 67 Year
  Sex: Male

DRUGS (1)
  1. VEDOLIZUMAB [Suspect]
     Active Substance: VEDOLIZUMAB
     Indication: Crohn^s disease
     Dosage: 300 MILLIGRAM
     Route: 042
     Dates: start: 20200811

REACTIONS (4)
  - Enterostomy [Unknown]
  - Malaise [Unknown]
  - Asthenia [Unknown]
  - Product dose omission issue [Unknown]
